FAERS Safety Report 7238076-9 (Version None)
Quarter: 2011Q1

REPORT INFORMATION
  Report Type: 
  Country: None (occurrence: None)
  Receive Date: 20110121
  Receipt Date: 20110111
  Transmission Date: 20110831
  Serious: Yes (Death, Hospitalization)
  Sender: FDA-Public Use
  Company Number: B0693680A

PATIENT
  Age: 85 Year
  Sex: Female
  Weight: 39 kg

DRUGS (4)
  1. TRIMEPRAZINE TARTRATE [Concomitant]
     Route: 065
  2. TOPALGIC (FRANCE) [Concomitant]
     Route: 065
  3. ARIXTRA [Suspect]
     Indication: THROMBOSIS PROPHYLAXIS
     Dosage: 2.5MG PER DAY
     Route: 058
     Dates: start: 20101102, end: 20101111
  4. NEBIVOLOL [Concomitant]
     Route: 065

REACTIONS (3)
  - HAEMATOMA [None]
  - RENAL FAILURE ACUTE [None]
  - ANAEMIA [None]
